FAERS Safety Report 10555890 (Version 3)
Quarter: 2014Q4

REPORT INFORMATION
  Report Type: Spontaneous
  Country: US (occurrence: US)
  Receive Date: 20141030
  Receipt Date: 20141119
  Transmission Date: 20150529
  Serious: No
  Sender: FDA-Public Use
  Company Number: US-PFIZER INC-2014298594

PATIENT
  Age: 83 Year
  Sex: Male
  Weight: 78 kg

DRUGS (4)
  1. ATORVASTATIN [Concomitant]
     Active Substance: ATORVASTATIN
     Indication: BLOOD CHOLESTEROL
     Dosage: 80 MG, DAILY
  2. TIKOSYN [Suspect]
     Active Substance: DOFETILIDE
     Indication: ATRIAL FIBRILLATION
     Dosage: UNK
  3. ASPIRINE [Concomitant]
     Active Substance: ASPIRIN
     Dosage: UNK,1X/DAY
  4. TIKOSYN [Suspect]
     Active Substance: DOFETILIDE
     Dosage: UNK ( TWO TABLETS), 2X/DAY FOR THREE DAYS
     Dates: start: 201402

REACTIONS (1)
  - Drug ineffective [Recovered/Resolved]

NARRATIVE: CASE EVENT DATE: 201402
